FAERS Safety Report 10146523 (Version 2)
Quarter: 2014Q3

REPORT INFORMATION
  Report Type: Report from Study
  Country: CA (occurrence: CA)
  Receive Date: 20140501
  Receipt Date: 20140903
  Transmission Date: 20150326
  Serious: Yes (Other)
  Sender: FDA-Public Use
  Company Number: CA-GILEAD-2014-0100152

PATIENT
  Age: 53 Year
  Sex: Female

DRUGS (19)
  1. LASIX [Concomitant]
     Active Substance: FUROSEMIDE
     Indication: FLUID RETENTION
  2. SPIRONOLACTONE. [Concomitant]
     Active Substance: SPIRONOLACTONE
     Indication: FLUID RETENTION
     Dosage: UNK
  3. POTASSIUM CHLORIDE. [Concomitant]
     Active Substance: POTASSIUM CHLORIDE
  4. SOFOSBUVIR [Suspect]
     Active Substance: SOFOSBUVIR
     Dosage: 400 MG, QD
     Route: 065
     Dates: start: 20140415, end: 20140630
  5. TYLENOL [Concomitant]
     Active Substance: ACETAMINOPHEN
     Indication: PAIN
     Dosage: UNK
  6. VITAMIN D                          /00107901/ [Concomitant]
     Active Substance: ERGOCALCIFEROL
  7. IMOVANE [Concomitant]
     Active Substance: ZOPICLONE
     Indication: INSOMNIA
     Dosage: UNK
  8. ESCITALOPRAM [Concomitant]
     Active Substance: ESCITALOPRAM OXALATE
     Indication: DEPRESSION
     Dosage: UNK
  9. SIMEPREVIR [Suspect]
     Active Substance: SIMEPREVIR
     Indication: HEPATITIS C
     Dosage: UNK, BID
     Route: 065
     Dates: start: 20140408, end: 20140414
  10. SIMEPREVIR [Suspect]
     Active Substance: SIMEPREVIR
     Dosage: UNK, QD
     Route: 065
     Dates: start: 20140415, end: 20140630
  11. QUETIAPINE [Concomitant]
     Active Substance: QUETIAPINE
     Dosage: UNK
  12. LORAZEPAM. [Concomitant]
     Active Substance: LORAZEPAM
     Indication: ANXIETY
     Dosage: UNK
  13. MULTIVITAMIN                       /07504101/ [Concomitant]
     Active Substance: VITAMINS
     Dosage: UNK
  14. SORAFENIB [Concomitant]
     Active Substance: SORAFENIB
     Indication: NEOPLASM MALIGNANT
     Dosage: UNK
     Dates: start: 2010
  15. TYLENOL [Concomitant]
     Active Substance: ACETAMINOPHEN
     Indication: HEADACHE
  16. SOFOSBUVIR [Suspect]
     Active Substance: SOFOSBUVIR
     Indication: HEPATITIS C
     Dosage: 400 MG, BID
     Route: 065
     Dates: start: 20140408, end: 20140414
  17. WELLBUTRIN [Concomitant]
     Active Substance: BUPROPION HYDROCHLORIDE
     Indication: DEPRESSION
     Dosage: UNK
  18. CALCIUM W/MAGNESIUM [Concomitant]
     Dosage: UNK
  19. CALCIUM [Concomitant]
     Active Substance: CALCIUM
     Dosage: UNK

REACTIONS (4)
  - Liver disorder [Unknown]
  - Overdose [Recovered/Resolved]
  - Encephalopathy [Not Recovered/Not Resolved]
  - Headache [Not Recovered/Not Resolved]

NARRATIVE: CASE EVENT DATE: 20140408
